FAERS Safety Report 6214035-X (Version None)
Quarter: 2009Q2

REPORT INFORMATION
  Report Type: 
  Country: None (occurrence: None)
  Receive Date: 20090604
  Receipt Date: 20090529
  Transmission Date: 20091009
  Serious: Yes (Other)
  Sender: FDA-Public Use
  Company Number: US-JNJFOC-20090402225

PATIENT
  Sex: Female

DRUGS (7)
  1. RISPERDAL [Suspect]
     Indication: SCHIZOPHRENIA
     Dosage: 1.5MG BID - 6MG QD
     Route: 065
  2. CLOZARIL [Suspect]
     Indication: SCHIZOPHRENIA
     Dosage: 25- 200 MG QD
     Route: 048
  3. DEPAKOTE ER [Suspect]
     Indication: SCHIZOPHRENIA
     Route: 065
  4. SEROQUEL [Suspect]
     Indication: SCHIZOPHRENIA
     Route: 065
  5. ABILIFY [Suspect]
     Indication: SCHIZOPHRENIA
     Route: 065
  6. ATIVAN [Concomitant]
     Indication: SCHIZOPHRENIA
     Route: 065
  7. COGENTIN [Concomitant]
     Indication: SCHIZOPHRENIA
     Route: 065

REACTIONS (3)
  - ANAEMIA [None]
  - GRANULOCYTOPENIA [None]
  - LEUKOPENIA [None]
